FAERS Safety Report 11258903 (Version 2)
Quarter: 2015Q3

REPORT INFORMATION
  Report Type: Report from Study
  Country: NL (occurrence: NL)
  Receive Date: 20150710
  Receipt Date: 20150728
  Transmission Date: 20151125
  Serious: Yes (Hospitalization)
  Sender: FDA-Public Use
  Company Number: NL-BIOGENIDEC-2015BI090326

PATIENT
  Age: 55 Year
  Sex: Male

DRUGS (12)
  1. DIVISUN [Concomitant]
     Dates: start: 20130705
  2. PARACETAMOL [Concomitant]
     Active Substance: ACETAMINOPHEN
     Dates: start: 20141112
  3. METOPROLOL SUCCINATE. [Concomitant]
     Active Substance: METOPROLOL SUCCINATE
     Dates: start: 20130208
  4. PANTOPRAZOLE SODIUM. [Concomitant]
     Active Substance: PANTOPRAZOLE SODIUM
     Dates: start: 20130730
  5. BACLOFEN. [Concomitant]
     Active Substance: BACLOFEN
     Dates: start: 20141110
  6. LORMETAZEPAM [Concomitant]
     Active Substance: LORMETAZEPAM
     Dates: start: 20121023
  7. TECFIDERA [Suspect]
     Active Substance: DIMETHYL FUMARATE
     Indication: RELAPSING-REMITTING MULTIPLE SCLEROSIS
     Route: 048
     Dates: start: 20150320, end: 20150326
  8. CARBASAL CALCIUM [Concomitant]
     Dates: start: 20121023
  9. SPIRONOLACTONE. [Concomitant]
     Active Substance: SPIRONOLACTONE
     Dates: start: 20130904
  10. LASIX [Concomitant]
     Active Substance: FUROSEMIDE
     Dates: start: 20141112
  11. TECFIDERA [Suspect]
     Active Substance: DIMETHYL FUMARATE
     Indication: RELAPSING-REMITTING MULTIPLE SCLEROSIS
     Route: 048
     Dates: start: 20150327, end: 20150520
  12. SIMVASTATINE [Concomitant]
     Active Substance: SIMVASTATIN
     Dates: start: 20121023

REACTIONS (1)
  - Hepatic neoplasm [Recovered/Resolved]

NARRATIVE: CASE EVENT DATE: 20150520
